FAERS Safety Report 19370651 (Version 3)
Quarter: 2021Q2

REPORT INFORMATION
  Report Type: Report from Study
  Country: DE (occurrence: DE)
  Receive Date: 20210604
  Receipt Date: 20210615
  Transmission Date: 20210717
  Serious: Yes (Hospitalization, Other)
  Sender: FDA-Public Use
  Company Number: DE-BRISTOL-MYERS SQUIBB COMPANY-BMS-2021-027235

PATIENT
  Age: 70 Year
  Sex: Male

DRUGS (12)
  1. GABAPENTIN. [Concomitant]
     Active Substance: GABAPENTIN
     Indication: PRODUCT USED FOR UNKNOWN INDICATION
     Dosage: 100 MILLIGRAM, TID
     Route: 065
     Dates: start: 20210216
  2. METAMIZOL [Concomitant]
     Active Substance: METAMIZOLE SODIUM
     Indication: NEOPLASM
     Dosage: 500 MILLIGRAM, QID
     Route: 065
     Dates: start: 20210216
  3. PANTOPRAZOL [PANTOPRAZOLE] [Concomitant]
     Active Substance: PANTOPRAZOLE
     Indication: PROPHYLAXIS
     Dosage: 40 MILLIGRAM, QD
     Route: 065
     Dates: start: 20210216
  4. INNOHEP [Concomitant]
     Active Substance: TINZAPARIN SODIUM
     Indication: PROPHYLAXIS
     Dosage: 2000 INTERNATIONAL UNIT
     Route: 065
     Dates: start: 20210323, end: 20210326
  5. FENTANYL. [Concomitant]
     Active Substance: FENTANYL
     Indication: NEOPLASM
     Dosage: PATCH
     Route: 065
     Dates: start: 20210216
  6. SMOFKABIVEN [Concomitant]
     Active Substance: AMINO ACIDS\DEXTROSE\ELECTROLYTES NOS\SOYBEAN OIL
     Indication: PROPHYLAXIS
     Dosage: 1477 MILLILITER, QD
     Route: 065
     Dates: start: 20210326
  7. NIVOLUMAB [Suspect]
     Active Substance: NIVOLUMAB
     Indication: SQUAMOUS CELL CARCINOMA OF HEAD AND NECK
     Dosage: 240 MILLIGRAM, Q2WK
     Route: 042
     Dates: start: 20210215
  8. ERGENYL [Concomitant]
     Active Substance: VALPROIC ACID
     Indication: PROPHYLAXIS
     Dosage: 300 MILLIGRAM, BID
     Route: 065
     Dates: start: 20210326
  9. MORPHINE [Concomitant]
     Active Substance: MORPHINE
     Indication: NEOPLASM
     Dosage: 10 MG/ML, UP TO 6 TIMES A DAY
     Route: 065
     Dates: start: 20210326
  10. CARBOPLATIN. [Suspect]
     Active Substance: CARBOPLATIN
     Indication: SQUAMOUS CELL CARCINOMA OF HEAD AND NECK
     Dosage: 600 MILLIGRAM
     Route: 042
     Dates: start: 20210322, end: 20210322
  11. CARBOPLATIN. [Suspect]
     Active Substance: CARBOPLATIN
     Dosage: 680 ABSENT
     Route: 042
     Dates: start: 20210412, end: 20210412
  12. FENTANYL. [Concomitant]
     Active Substance: FENTANYL
     Indication: NEOPLASM
     Dosage: 50MCG, PUFF,, PRN
     Route: 045
     Dates: start: 20210216, end: 20210326

REACTIONS (5)
  - Malignant neoplasm progression [Unknown]
  - Pneumonia [Recovered/Resolved]
  - Cholangitis [Recovered/Resolved]
  - Intentional product use issue [Unknown]
  - Tumour haemorrhage [Recovered/Resolved]

NARRATIVE: CASE EVENT DATE: 20210317
